FAERS Safety Report 21607585 (Version 1)
Quarter: 2022Q4

REPORT INFORMATION
  Report Type: Spontaneous
  Country: FR (occurrence: FR)
  Receive Date: 20221117
  Receipt Date: 20221117
  Transmission Date: 20230113
  Serious: Yes (Hospitalization)
  Sender: FDA-Public Use
  Company Number: None

PATIENT
  Age: 16 Year
  Sex: Female
  Weight: 44 kg

DRUGS (1)
  1. ACETAMINOPHEN [Suspect]
     Active Substance: ACETAMINOPHEN
     Indication: Intentional overdose
     Dosage: 8 G
     Route: 048
     Dates: start: 20220929, end: 20220929

REACTIONS (5)
  - Abdominal pain [Recovered/Resolved]
  - Poisoning deliberate [Recovered/Resolved]
  - Vomiting [Recovered/Resolved]
  - Prothrombin level decreased [Recovered/Resolved]
  - Coagulation factor V level decreased [Recovered/Resolved]

NARRATIVE: CASE EVENT DATE: 20220929
